FAERS Safety Report 8920232 (Version 1)
Quarter: 2012Q4

REPORT INFORMATION
  Report Type: 
  Country: US (occurrence: US)
  Receive Date: 20121122
  Receipt Date: 20121122
  Transmission Date: 20130627
  Serious: Yes (Other)
  Sender: FDA-Public Use
  Company Number: US-ABBOTT-12P-163-1008384-00

PATIENT
  Age: 41 None
  Sex: Female
  Weight: 81.72 kg

DRUGS (4)
  1. LEVOTHYROXINE [Suspect]
     Indication: HYPOTHYROIDISM
     Route: 048
     Dates: start: 2011, end: 2012
  2. LEVOTHYROXINE [Suspect]
     Indication: HYPOTHYROIDISM
     Dosage: three and half tablet of 25mcg
     Route: 048
  3. OMEPRAZOLE [Suspect]
     Indication: GASTROOESOPHAGEAL REFLUX DISEASE
     Dates: start: 20121008, end: 20121008
  4. LEVOXYL [Suspect]
     Indication: HYPOTHYROIDISM
     Dosage: three and half tablet of 25mcg
     Route: 048
     Dates: start: 20121012

REACTIONS (9)
  - Choking sensation [Unknown]
  - Weight decreased [Unknown]
  - Hypersensitivity [Unknown]
  - Dyspnoea [Unknown]
  - Rash generalised [Unknown]
  - Gastrooesophageal reflux disease [Unknown]
  - Migraine [Unknown]
  - Urticaria [Unknown]
  - Headache [Unknown]
